FAERS Safety Report 16801913 (Version 1)
Quarter: 2019Q3

REPORT INFORMATION
  Report Type: Spontaneous
  Country: US (occurrence: US)
  Receive Date: 20190912
  Receipt Date: 20190912
  Transmission Date: 20191005
  Serious: Yes (Death, Other)
  Sender: FDA-Public Use
  Company Number: US-GILEAD-2019-0427646

PATIENT
  Age: 55 Year
  Sex: Male

DRUGS (19)
  1. VOSEVI [Suspect]
     Active Substance: SOFOSBUVIR\VELPATASVIR\VOXILAPREVIR
     Indication: CHRONIC HEPATITIS C
     Dosage: 1 DOSAGE FORM (400-100-100MG), QD
     Route: 048
  2. GABAPENTIN. [Concomitant]
     Active Substance: GABAPENTIN
  3. FUROSEMIDE. [Concomitant]
     Active Substance: FUROSEMIDE
  4. BASAGLAR [Concomitant]
     Active Substance: INSULIN GLARGINE
  5. RIFAXIMIN. [Concomitant]
     Active Substance: RIFAXIMIN
  6. HARVONI [Concomitant]
     Active Substance: LEDIPASVIR\SOFOSBUVIR
     Indication: PRODUCT USED FOR UNKNOWN INDICATION
     Route: 065
  7. SPIRONOLACTONE. [Concomitant]
     Active Substance: SPIRONOLACTONE
  8. PRAMIPEXOLE DIHYDROCHLORIDE. [Concomitant]
     Active Substance: PRAMIPEXOLE DIHYDROCHLORIDE
  9. CITALOPRAM [Concomitant]
     Active Substance: CITALOPRAM HYDROBROMIDE
  10. MULTIVITAMINS [VITAMINS NOS] [Concomitant]
     Active Substance: VITAMINS
  11. FOLIC ACID. [Concomitant]
     Active Substance: FOLIC ACID
  12. RIBAVIRIN. [Concomitant]
     Active Substance: RIBAVIRIN
  13. ONDANSETRON ODT DRLA [Concomitant]
     Active Substance: ONDANSETRON
  14. LACTULOSE. [Concomitant]
     Active Substance: LACTULOSE
  15. HUMALOG [Concomitant]
     Active Substance: INSULIN LISPRO
  16. BACLOFEN. [Concomitant]
     Active Substance: BACLOFEN
  17. PANTOPRAZOLE SODIUM. [Concomitant]
     Active Substance: PANTOPRAZOLE SODIUM
  18. LEVETIRACETAM. [Concomitant]
     Active Substance: LEVETIRACETAM
  19. FLUOXETINE [Concomitant]
     Active Substance: FLUOXETINE HYDROCHLORIDE

REACTIONS (1)
  - Death [Fatal]

NARRATIVE: CASE EVENT DATE: 20190904
